FAERS Safety Report 6390845-3 (Version None)
Quarter: 2009Q4

REPORT INFORMATION
  Report Type: 
  Country: None (occurrence: None)
  Receive Date: 20091006
  Receipt Date: 20090929
  Transmission Date: 20100525
  Serious: Yes (Other)
  Sender: FDA-Public Use
  Company Number: US-CVT-090634

PATIENT

DRUGS (2)
  1. RANEXA [Suspect]
     Indication: ANGINA PECTORIS
     Dosage: 1000 MG, BID
     Dates: start: 20090801, end: 20090801
  2. VERAPAMIL                          /00014301/ [Concomitant]

REACTIONS (4)
  - DYSPNOEA [None]
  - MUSCULAR WEAKNESS [None]
  - SWOLLEN TONGUE [None]
  - VISION BLURRED [None]
